FAERS Safety Report 23784385 (Version 2)
Quarter: 2024Q2

REPORT INFORMATION
  Report Type: Spontaneous
  Country: US (occurrence: US)
  Receive Date: 20240425
  Receipt Date: 20240426
  Transmission Date: 20240715
  Serious: No
  Sender: FDA-Public Use
  Company Number: US-Kiniksa Pharmaceuticals Ltd.-2023KPU000617

PATIENT
  Age: 57 Year
  Sex: Female

DRUGS (1)
  1. ARCALYST [Suspect]
     Active Substance: RILONACEPT
     Indication: Pericarditis
     Route: 050
     Dates: start: 20230701

REACTIONS (6)
  - Pain [Unknown]
  - Chest pain [Unknown]
  - Back pain [Unknown]
  - Product dose omission issue [Unknown]
  - Product complaint [Unknown]
  - Injection site haemorrhage [Unknown]

NARRATIVE: CASE EVENT DATE: 20230701
